FAERS Safety Report 23158798 (Version 2)
Quarter: 2023Q4

REPORT INFORMATION
  Report Type: Spontaneous
  Country: DE (occurrence: DE)
  Receive Date: 20231108
  Receipt Date: 20231225
  Transmission Date: 20240109
  Serious: No
  Sender: FDA-Public Use
  Company Number: DE-ASTELLAS-2023US028341

PATIENT
  Age: 83 Year
  Sex: Female
  Weight: 59 kg

DRUGS (28)
  1. PADCEV [Suspect]
     Active Substance: ENFORTUMAB VEDOTIN-EJFV
     Indication: Transitional cell carcinoma
     Dosage: 1.25 MG/KG, CYCLIC (74 MG IN 100 MGL NACL 0.9%, 1ST CYCLE) INFUSION:1
     Route: 042
     Dates: start: 20230824
  2. PADCEV [Suspect]
     Active Substance: ENFORTUMAB VEDOTIN-EJFV
     Dosage: 1.25 MG/KG, CYCLIC (74 MG IN 100 ML NACL 0.9 %, 1ST CYCLE) INFUSION: 2
     Route: 042
     Dates: start: 20230831
  3. PADCEV [Suspect]
     Active Substance: ENFORTUMAB VEDOTIN-EJFV
     Dosage: 1.25 MG/KG, CYCLIC (74 MG IN 100 ML NACL 0.9 %, 1ST CYCLE) INFUSION: 3
     Route: 042
     Dates: start: 20230907
  4. PADCEV [Suspect]
     Active Substance: ENFORTUMAB VEDOTIN-EJFV
     Dosage: 1 MG/KG, CYCLIC (59 MG IN 100 ML NACL 0.9 %, 2ND CYCLE) INFUSION: 1
     Route: 042
     Dates: start: 20231019
  5. PADCEV [Suspect]
     Active Substance: ENFORTUMAB VEDOTIN-EJFV
     Dosage: 1 MG/KG, CYCLIC (59 MG IN 100 ML NACL 0.9 %, 2ND CYCLE) INFUSION: 2
     Route: 042
     Dates: start: 20231026
  6. PADCEV [Suspect]
     Active Substance: ENFORTUMAB VEDOTIN-EJFV
     Dosage: 1 MG/KG, CYCLIC (59 MG IN 100 ML NACL 0.9 %, 2ND CYCLE) INFUSION: 3
     Route: 042
     Dates: start: 20231102
  7. PADCEV [Suspect]
     Active Substance: ENFORTUMAB VEDOTIN-EJFV
     Dosage: 1 MG/KG, CYCLIC (59 MG IN 100 ML NACL 0.9 %, 3RD CYCLE) INFUSION: 1
     Route: 042
     Dates: start: 20231116
  8. PADCEV [Suspect]
     Active Substance: ENFORTUMAB VEDOTIN-EJFV
     Dosage: 1 MG/KG, CYCLIC (59 MG IN 100 ML NACL 0.9 %, 3RD CYCLE) INFUSION: 2
     Route: 042
     Dates: start: 20231123
  9. PADCEV [Suspect]
     Active Substance: ENFORTUMAB VEDOTIN-EJFV
     Dosage: 1 MG/KG, CYCLIC (59 MG IN 100 ML NACL 0.9 %, 3RD CYCLE) INFUSION: 3
     Route: 042
     Dates: start: 20231130
  10. PADCEV [Suspect]
     Active Substance: ENFORTUMAB VEDOTIN-EJFV
     Dosage: 1 MG/KG, CYCLIC (59 MG IN 100 ML NACL 0.9 %, 4TH CYCLE) INFUSION: 1
     Route: 042
     Dates: start: 20231214
  11. AMLODIPIN BESILAT HEUMANN [Concomitant]
     Indication: Product used for unknown indication
     Dosage: 0.5 DF (5 MG), ONCE DAILY (1/2 MORNING)
     Route: 065
  12. RAMIPRIL AL [Concomitant]
     Indication: Product used for unknown indication
     Dosage: 5 MG, ONCE DAILY (1 MORNING, 0 MIDDAY, 0 EVENING, 0 NIGHT)
     Route: 065
  13. RENVELA [Concomitant]
     Active Substance: SEVELAMER CARBONATE
     Indication: Product used for unknown indication
     Dosage: 800 MG, THRICE DAILY (1 MORNING, 2 MIDDAY, 2 EVENING, 0 NIGHT (TO MEAL))
     Route: 065
  14. ASCORBIC ACID\BIOTIN\CALCIUM PANTOTHENATE\CYANOCOBALAMIN\FOLIC ACID\NI [Concomitant]
     Active Substance: ASCORBIC ACID\BIOTIN\CALCIUM PANTOTHENATE\CYANOCOBALAMIN\FOLIC ACID\NIACINAMIDE\PYRIDOXINE HYDROCHLO
     Indication: Product used for unknown indication
     Dosage: 1 DF, ONCE DAILY (0 MORNING, 0 MIDDAY, 1 EVENING, 0 NIGHT)
     Route: 065
  15. LEVOTHYROXINE SODIUM [Concomitant]
     Active Substance: LEVOTHYROXINE SODIUM
     Indication: Product used for unknown indication
     Dosage: 50 ?G, ONCE DAILY (1 MORNING, 0 MIDDAY, 0 EVENING, 0 NIGHT)
     Route: 065
  16. METAMIZOLE [Concomitant]
     Active Substance: METAMIZOLE
     Indication: Product used for unknown indication
     Dosage: 500 MG, AS NEEDED (1-1-1)
     Route: 065
  17. LACTULOSE [Concomitant]
     Active Substance: LACTULOSE
     Indication: Product used for unknown indication
     Dosage: 1 DF (1 TABLESPOON), AS NEEDED
     Route: 065
  18. MOXONIDINE [Concomitant]
     Active Substance: MOXONIDINE
     Indication: Product used for unknown indication
     Dosage: 0.2 MG, ONCE DAILY (1 MORNING, 0 MIDDAY, 0 EVENING, 0 NIGHT)
     Route: 065
  19. Furosemid ratiopharm [Concomitant]
     Indication: Product used for unknown indication
     Dosage: 500 MG, F1-F1-0-0; D0-D1-0
     Route: 065
  20. BISOPROLOL [Concomitant]
     Active Substance: BISOPROLOL\BISOPROLOL FUMARATE
     Indication: Product used for unknown indication
     Dosage: 0.5 DF (5 MG), ONCE DAILY (1/2 MORNING)
     Route: 065
  21. FERRLECIT [Concomitant]
     Active Substance: SODIUM FERRIC GLUCONATE COMPLEX
     Indication: Dialysis
     Dosage: 62.5 MG, THRICE WEEKLY [MONDAY, WEDNESDAY, FRIDAY]
     Route: 042
  22. CHOLECALCIFEROL [Concomitant]
     Active Substance: CHOLECALCIFEROL
     Indication: Dialysis
     Dosage: 1 DF, [MONDAY]; WEEKLY INTERVAL 2
     Route: 048
  23. ERYTHROPOIETIN [Concomitant]
     Active Substance: ERYTHROPOIETIN
     Indication: Product used for unknown indication
     Dosage: 5000 IU, THRICE WEEKLY [MONDAY, WEDNESDAY, FRIDAY]
     Route: 058
  24. LEVOTHYROXINE [Concomitant]
     Active Substance: LEVOTHYROXINE
     Indication: Blood thyroid stimulating hormone increased
     Dosage: UNK UNK, UNKNOWN FREQ.
     Route: 065
  25. LEVOTHYROXINE [Concomitant]
     Active Substance: LEVOTHYROXINE
     Dosage: UNK UNK, UNKNOWN FREQ.
     Route: 065
  26. TECENTRIQ [Concomitant]
     Active Substance: ATEZOLIZUMAB
     Indication: Product used for unknown indication
     Dosage: 1200 MG, UNKNOWN FREQ. (1200 MG IN NACI 0.9% 250ML)
     Route: 042
     Dates: start: 20221027
  27. TECENTRIQ [Concomitant]
     Active Substance: ATEZOLIZUMAB
     Dosage: 1200 MG, UNKNOWN FREQ. (1200 MG IN NACL 0.9% 250 ML) INFUSION PERFORMED: 12
     Route: 042
     Dates: start: 20230706
  28. TECENTRIQ [Concomitant]
     Active Substance: ATEZOLIZUMAB
     Dosage: 1200 MG, UNKNOWN FREQ. (1200 MG IN NACL 0.9% 250 ML) INFUSION PERFORMED: 13
     Route: 042
     Dates: start: 20230727, end: 20230727

REACTIONS (12)
  - Purulent discharge [Unknown]
  - Blister [Unknown]
  - Alopecia [Recovering/Resolving]
  - Bronchitis [Unknown]
  - Back pain [Recovering/Resolving]
  - Muscle strain [Unknown]
  - Dermatitis [Unknown]
  - Adjustment disorder [Unknown]
  - Pulmonary pain [Unknown]
  - Finger deformity [Unknown]
  - Catheter site inflammation [Unknown]
  - Nasopharyngitis [Recovered/Resolved]

NARRATIVE: CASE EVENT DATE: 20230918
